FAERS Safety Report 7056097-6 (Version None)
Quarter: 2010Q4

REPORT INFORMATION
  Report Type: 
  Country: None (occurrence: None)
  Receive Date: 20101018
  Receipt Date: 20101018
  Transmission Date: 20110411
  Serious: Yes (Death)
  Sender: FDA-Public Use
  Company Number: 1022556-2010-00063

PATIENT
  Age: 42 Year
  Sex: Male

DRUGS (1)
  1. UNISOM [Suspect]
     Indication: INSOMNIA
     Dosage: ORAL, ONCE
     Route: 048

REACTIONS (2)
  - COMPLETED SUICIDE [None]
  - DRUG TOXICITY [None]
